FAERS Safety Report 6370122-7 (Version None)
Quarter: 2009Q3

REPORT INFORMATION
  Report Type: 
  Country: None (occurrence: None)
  Receive Date: 20090923
  Receipt Date: 20080219
  Transmission Date: 20100115
  Serious: Yes (Other)
  Sender: FDA-Public Use
  Company Number: US-ASTRAZENECA-2006UW21426

PATIENT
  Age: 38 Year
  Sex: Female
  Weight: 76.2 kg

DRUGS (13)
  1. SEROQUEL [Suspect]
     Indication: BIPOLAR DISORDER
     Route: 048
     Dates: start: 20010510
  2. SEROQUEL [Suspect]
     Indication: DEPRESSION
     Route: 048
     Dates: start: 20010510
  3. SEROQUEL [Suspect]
     Route: 048
     Dates: start: 20020101, end: 20030101
  4. SEROQUEL [Suspect]
     Route: 048
     Dates: start: 20020101, end: 20030101
  5. RISPERDAL [Concomitant]
  6. ZYPREXA [Concomitant]
  7. EFFEXOR XR [Concomitant]
  8. PAXIL [Concomitant]
  9. TRAZODONE HCL [Concomitant]
  10. PROZAC [Concomitant]
  11. NEURONTIN [Concomitant]
     Route: 048
     Dates: start: 20010510
  12. FLOVENT [Concomitant]
     Dosage: TWO PUFF BID
     Dates: start: 20010510
  13. SEREVENT [Concomitant]
     Dosage: TWO PUFF BID
     Dates: start: 20010510

REACTIONS (3)
  - DIABETES MELLITUS [None]
  - PANCREATITIS [None]
  - TYPE 2 DIABETES MELLITUS [None]
